FAERS Safety Report 4688490-0 (Version None)
Quarter: 2005Q2

REPORT INFORMATION
  Report Type: 
  Country: None (occurrence: None)
  Receive Date: 20050613
  Receipt Date: 20050603
  Transmission Date: 20051028
  Serious: Yes (Death)
  Sender: FDA-Public Use
  Company Number: US-JNJFOC-20050601415

PATIENT
  Sex: Female
  Weight: 35.38 kg

DRUGS (11)
  1. REMICADE [Suspect]
     Route: 042
  2. REMICADE [Suspect]
     Indication: CROHN'S DISEASE
     Route: 042
  3. STEROIDS [Concomitant]
  4. IMURAN [Concomitant]
  5. LASIX [Concomitant]
  6. PENTASA [Concomitant]
  7. SYNTHROID [Concomitant]
  8. PREVACID [Concomitant]
  9. ZOLOFT [Concomitant]
  10. POTASSIUM CHLORIDE [Concomitant]
  11. CALCIUM GLUCONATE [Concomitant]

REACTIONS (1)
  - DEATH [None]
